FAERS Safety Report 6738458-5 (Version None)
Quarter: 2010Q2

REPORT INFORMATION
  Report Type: 
  Country: None (occurrence: None)
  Receive Date: 20100524
  Receipt Date: 20100513
  Transmission Date: 20101027
  Serious: Yes (Hospitalization)
  Sender: FDA-Public Use
  Company Number: IT-JNJFOC-20100508287

PATIENT
  Age: 52 Year
  Sex: Male

DRUGS (5)
  1. REMICADE [Suspect]
     Indication: COLITIS ULCERATIVE
     Route: 042
  2. REMICADE [Suspect]
     Dosage: SECOND INFUSION
     Route: 042
  3. DELTACORTENE [Concomitant]
     Dosage: FOR 10 DAYS
     Route: 048
  4. RABEPRAZOLE SODIUM [Concomitant]
     Dosage: FOR 10 DAYS
     Route: 048
  5. TPN [Concomitant]
     Dosage: FOR 30 DAYS

REACTIONS (3)
  - ANAEMIA [None]
  - CYTOMEGALOVIRUS INFECTION [None]
  - THROMBOCYTOPENIA [None]
